FAERS Safety Report 6035890-2 (Version None)
Quarter: 2009Q1

REPORT INFORMATION
  Report Type: 
  Country: None (occurrence: None)
  Receive Date: 20090113
  Receipt Date: 20090109
  Transmission Date: 20090719
  Serious: Yes (Hospitalization)
  Sender: FDA-Public Use
  Company Number: A0718168A

PATIENT
  Age: 46 Year
  Sex: Male
  Weight: 106.8 kg

DRUGS (14)
  1. AVANDIA [Suspect]
     Dosage: 8MG PER DAY
     Route: 048
     Dates: start: 20030101, end: 20070617
  2. ZYPREXA [Concomitant]
  3. AMARYL [Concomitant]
  4. TRAZODONE HCL [Concomitant]
  5. INSULIN [Concomitant]
  6. GLIMEPIRIDE [Concomitant]
  7. OLANZAPINE [Concomitant]
  8. SIMVASTATIN [Concomitant]
  9. PROAIR HFA [Concomitant]
  10. PREVACID [Concomitant]
  11. ABILIFY [Concomitant]
  12. AMBIEN CR [Concomitant]
  13. LEXAPRO [Concomitant]
  14. ATIVAN [Concomitant]

REACTIONS (3)
  - CEREBROVASCULAR ACCIDENT [None]
  - HEART INJURY [None]
  - MYOCARDIAL INFARCTION [None]
